FAERS Safety Report 6378888-7 (Version None)
Quarter: 2009Q3

REPORT INFORMATION
  Report Type: 
  Country: None (occurrence: None)
  Receive Date: 20090921
  Receipt Date: 20090914
  Transmission Date: 20100115
  Serious: Yes (Other)
  Sender: FDA-Public Use
  Company Number: SPV1-2009-01834

PATIENT
  Age: 14 Year
  Sex: Female

DRUGS (1)
  1. DAYTRANA [Suspect]
     Dosage: 1X/DAY:QD, TRANSDERMAL
     Route: 062

REACTIONS (5)
  - DEHYDRATION [None]
  - OFF LABEL USE [None]
  - ORTHOSTATIC HYPOTENSION [None]
  - SYNCOPE [None]
  - TACHYCARDIA [None]
